FAERS Safety Report 4352701-1 (Version None)
Quarter: 2004Q2

REPORT INFORMATION
  Report Type: 
  Country: None (occurrence: None)
  Receive Date: 20040429
  Receipt Date: 20040420
  Transmission Date: 20050107
  Serious: Yes (Hospitalization)
  Sender: FDA-Public Use
  Company Number: 04P-163-0258065-00

PATIENT
  Age: 70 Year
  Sex: Female
  Weight: 47.6277 kg

DRUGS (1)
  1. BIAXIN [Suspect]
     Indication: PHARYNGITIS STREPTOCOCCAL
     Dosage: 500 MG, 2 IN 1 D, PER ORAL
     Route: 048
     Dates: start: 20040309, end: 20040312

REACTIONS (5)
  - BONE PAIN [None]
  - CHEST PAIN [None]
  - DIARRHOEA [None]
  - INFECTION [None]
  - VOMITING [None]
